FAERS Safety Report 8443728-9 (Version None)
Quarter: 2012Q2

REPORT INFORMATION
  Report Type: 
  Country: None (occurrence: None)
  Receive Date: 20120618
  Receipt Date: 20120611
  Transmission Date: 20120825
  Serious: Yes (Death, Other)
  Sender: FDA-Public Use
  Company Number: US-ELI_LILLY_AND_COMPANY-US201206004922

PATIENT
  Age: 27 Year
  Sex: Male

DRUGS (1)
  1. PROZAC [Suspect]
     Dosage: UNK, UNK

REACTIONS (5)
  - HAEMORRHAGE [None]
  - ACUTE HEPATIC FAILURE [None]
  - GASTROINTESTINAL HAEMORRHAGE [None]
  - EXFOLIATIVE RASH [None]
  - RENAL TUBULAR NECROSIS [None]
